FAERS Safety Report 19451584 (Version 3)
Quarter: 2021Q3

REPORT INFORMATION
  Report Type: Spontaneous
  Country: GB (occurrence: GB)
  Receive Date: 20210623
  Receipt Date: 20210804
  Transmission Date: 20211014
  Serious: Yes (Other)
  Sender: FDA-Public Use
  Company Number: GB-AMGEN-GBRSP2021095289

PATIENT
  Age: 73 Year
  Sex: Male

DRUGS (1)
  1. ENBREL [Suspect]
     Active Substance: ETANERCEPT
     Indication: RHEUMATOID ARTHRITIS
     Dosage: 50 MG EVERY OTHER WEEK
     Route: 065

REACTIONS (5)
  - Device use error [Unknown]
  - Lower respiratory tract infection [Recovered/Resolved]
  - Dementia Alzheimer^s type [Unknown]
  - Off label use [Unknown]
  - Dysphagia [Unknown]
